FAERS Safety Report 5762140-4 (Version None)
Quarter: 2008Q2

REPORT INFORMATION
  Report Type: 
  Country: None (occurrence: None)
  Receive Date: 20080604
  Receipt Date: 20080521
  Transmission Date: 20081010
  Serious: Yes (Other)
  Sender: FDA-Public Use
  Company Number: 8033032

PATIENT
  Age: 10 Year
  Sex: Female

DRUGS (2)
  1. KEPPRA [Suspect]
  2. VALPROATE SODIUM [Concomitant]

REACTIONS (4)
  - AGGRESSION [None]
  - APATHY [None]
  - COLITIS ULCERATIVE [None]
  - PERSONALITY CHANGE [None]
